FAERS Safety Report 16246003 (Version 1)
Quarter: 2019Q2

REPORT INFORMATION
  Report Type: Spontaneous
  Country: US (occurrence: US)
  Receive Date: 20190426
  Receipt Date: 20190426
  Transmission Date: 20190711
  Serious: Yes (Hospitalization, Other)
  Sender: FDA-Public Use
  Company Number: US-BIOGEN-2010BI007537

PATIENT
  Age: 38 Year
  Sex: Female
  Weight: 46.76 kg

DRUGS (1)
  1. TYSABRI [Suspect]
     Active Substance: NATALIZUMAB
     Indication: MULTIPLE SCLEROSIS
     Route: 050
     Dates: start: 20070806, end: 20100224

REACTIONS (10)
  - Urinary tract infection pseudomonal [Unknown]
  - Infusion site cellulitis [Unknown]
  - Thrombocytopenia [Unknown]
  - Multiple sclerosis relapse [Unknown]
  - Post lumbar puncture syndrome [Unknown]
  - Progressive multifocal leukoencephalopathy [Recovered/Resolved]
  - Partial seizures with secondary generalisation [Recovered/Resolved]
  - Immune reconstitution inflammatory syndrome [Recovered/Resolved]
  - Muscular weakness [Unknown]
  - Lung disorder [Unknown]

NARRATIVE: CASE EVENT DATE: 200909
